FAERS Safety Report 13724612 (Version 2)
Quarter: 2017Q3

REPORT INFORMATION
  Report Type: Spontaneous
  Country: FR (occurrence: FR)
  Receive Date: 20170706
  Receipt Date: 20170711
  Transmission Date: 20171127
  Serious: Yes (Other)
  Sender: FDA-Public Use
  Company Number: FR-PFIZER INC-2017291988

PATIENT
  Age: 69 Year
  Sex: Female

DRUGS (4)
  1. OXALIPLATIN. [Suspect]
     Active Substance: OXALIPLATIN
     Indication: ADENOCARCINOMA OF COLON
     Dosage: 85 MG/M2, CYCLIC, 8 COURSES
     Route: 048
     Dates: start: 20160101, end: 20160606
  2. FLUOROURACIL. [Suspect]
     Active Substance: FLUOROURACIL
     Indication: ADENOCARCINOMA OF COLON
     Dosage: UNK, CYCLIC, 4 CYCLES
     Route: 042
     Dates: start: 20160101, end: 20160308
  3. TEVAGRASTIM [Suspect]
     Active Substance: FILGRASTIM
     Indication: NEUTROPENIA
     Dosage: 2 DF, CYCLIC
     Route: 042
     Dates: start: 201602, end: 20160607
  4. TOMUDEX [Suspect]
     Active Substance: RALTITREXED
     Indication: ADENOCARCINOMA OF COLON
     Dosage: 3.7 MG, CYCLIC, 4 CYLES
     Route: 042
     Dates: start: 20160405, end: 20160606

REACTIONS (2)
  - Second primary malignancy [Not Recovered/Not Resolved]
  - Chronic myeloid leukaemia [Not Recovered/Not Resolved]

NARRATIVE: CASE EVENT DATE: 201701
